FAERS Safety Report 7323653-7 (Version None)
Quarter: 2011Q1

REPORT INFORMATION
  Report Type: 
  Country: None (occurrence: None)
  Receive Date: 20110301
  Receipt Date: 20110217
  Transmission Date: 20110831
  Serious: Yes (Death, Life-Threatening)
  Sender: FDA-Public Use
  Company Number: GB-JNJFOC-20100807108

PATIENT
  Sex: Female
  Weight: 57 kg

DRUGS (3)
  1. NICORANDIL [Concomitant]
     Route: 065
  2. ASPIRIN [Concomitant]
     Route: 065
  3. REMICADE [Suspect]
     Indication: RHEUMATOID ARTHRITIS
     Route: 042

REACTIONS (1)
  - NON-SMALL CELL LUNG CANCER METASTATIC [None]
